FAERS Safety Report 7540795-1 (Version None)
Quarter: 2011Q2

REPORT INFORMATION
  Report Type: 
  Country: None (occurrence: None)
  Receive Date: 20110610
  Receipt Date: 20110603
  Transmission Date: 20111010
  Serious: Yes (Hospitalization)
  Sender: FDA-Public Use
  Company Number: US-ROCHE-780925

PATIENT
  Sex: Female

DRUGS (3)
  1. VIBATIV [Suspect]
     Indication: DIABETIC ULCER
     Dosage: OTHER INDICATIONS: OSTEOMYELITIS AND NON HEALING DIABETIC FOOT ULCER
     Route: 042
     Dates: start: 20110125, end: 20110210
  2. ROCEPHIN [Suspect]
     Route: 051
     Dates: start: 20110112, end: 20110210
  3. CEFEPIME [Suspect]
     Route: 065

REACTIONS (12)
  - PANCYTOPENIA [None]
  - RENAL FAILURE ACUTE [None]
  - DIABETIC FOOT [None]
  - PNEUMONIA [None]
  - NO THERAPEUTIC RESPONSE [None]
  - ANAEMIA [None]
  - DIABETES MELLITUS INADEQUATE CONTROL [None]
  - DIARRHOEA [None]
  - CELLULITIS [None]
  - TUBULOINTERSTITIAL NEPHRITIS [None]
  - SEPSIS [None]
  - OSTEOMYELITIS [None]
